FAERS Safety Report 4343119-6 (Version None)
Quarter: 2004Q2

REPORT INFORMATION
  Report Type: 
  Country: None (occurrence: None)
  Receive Date: 20040421
  Receipt Date: 20040130
  Transmission Date: 20050107
  Serious: Yes (Hospitalization, Other)
  Sender: FDA-Public Use
  Company Number: FR-GLAXOSMITHKLINE-B0322686A

PATIENT
  Age: 64 Year
  Sex: Male
  Weight: 64 kg

DRUGS (15)
  1. ZIAGEN [Suspect]
     Indication: HIV INFECTION
     Dosage: 300MG TWICE PER DAY
     Route: 048
  2. ZERIT [Suspect]
     Indication: HIV INFECTION
     Dosage: 40MG TWICE PER DAY
     Route: 048
  3. ATAZANAVIR [Suspect]
     Indication: HIV INFECTION
     Dosage: 400MG PER DAY
     Route: 048
  4. HYPNOVEL [Suspect]
  5. TRACRIUM [Suspect]
  6. ETOMIDATE [Suspect]
  7. SUFENTA [Suspect]
  8. LASIX [Concomitant]
     Indication: CARDIAC VALVE DISEASE
     Route: 065
  9. CO-RENITEC [Concomitant]
     Route: 065
  10. KARDEGIC [Concomitant]
     Indication: CARDIAC VALVE DISEASE
     Route: 065
  11. GLUCOPHAGE [Concomitant]
     Route: 065
  12. LIPUR [Concomitant]
     Route: 065
  13. OMEPRAZOLE [Concomitant]
     Route: 065
  14. XANAX [Concomitant]
     Indication: PREMEDICATION
     Route: 065
  15. ATARAX [Concomitant]
     Indication: PREMEDICATION
     Route: 065

REACTIONS (23)
  - AORTIC VALVE INCOMPETENCE [None]
  - ASPIRATION [None]
  - ATRIAL FIBRILLATION [None]
  - BODY TEMPERATURE INCREASED [None]
  - BRONCHIAL OBSTRUCTION [None]
  - CONVULSION [None]
  - DIABETES MELLITUS INADEQUATE CONTROL [None]
  - DRUG INTERACTION [None]
  - DYSPHAGIA [None]
  - EAR PAIN [None]
  - HAEMOCONCENTRATION [None]
  - HYPERCAPNIA [None]
  - HYPERTHERMIA [None]
  - INAPPROPRIATE ANTIDIURETIC HORMONE SECRETION [None]
  - ISCHAEMIC STROKE [None]
  - LARYNGEAL OEDEMA [None]
  - LUNG DISORDER [None]
  - MEDIASTINAL DISORDER [None]
  - MONOPLEGIA [None]
  - MYOCLONUS [None]
  - POLYURIA [None]
  - SUPERINFECTION LUNG [None]
  - WEIGHT DECREASED [None]
